FAERS Safety Report 17233141 (Version 1)
Quarter: 2020Q1

REPORT INFORMATION
  Report Type: Spontaneous
  Country: DE (occurrence: DE)
  Receive Date: 20200104
  Receipt Date: 20200104
  Transmission Date: 20200409
  Serious: Yes (Hospitalization, Other)
  Sender: FDA-Public Use
  Company Number: PHHY2019DE203642

PATIENT
  Age: 37 Year
  Sex: Female
  Weight: 66 kg

DRUGS (4)
  1. CIPROFLOXACIN. [Suspect]
     Active Substance: CIPROFLOXACIN
     Indication: PELVIC INFLAMMATORY DISEASE
     Dosage: 500 MG, QD (1-0-1)
     Route: 048
     Dates: start: 20181218
  2. CIPROFLOXACIN. [Suspect]
     Active Substance: CIPROFLOXACIN
     Indication: URINARY TRACT INFECTION
     Dosage: 250 MG, Q12H (1-0-1)
     Route: 048
  3. CIPROFLOXACIN. [Suspect]
     Active Substance: CIPROFLOXACIN
     Dosage: 500 MG, QD
     Route: 042
  4. CIPROFLOXACIN. [Suspect]
     Active Substance: CIPROFLOXACIN
     Indication: PYELONEPHRITIS
     Dosage: 500 MG, QD (1-0-1)
     Route: 048
     Dates: start: 20181129, end: 20190122

REACTIONS (28)
  - Somnolence [Not Recovered/Not Resolved]
  - Asthenia [Not Recovered/Not Resolved]
  - Tongue discomfort [Unknown]
  - Hypoaesthesia [Not Recovered/Not Resolved]
  - Paraesthesia [Recovering/Resolving]
  - Tenderness [Not Recovered/Not Resolved]
  - Hypoaesthesia [Unknown]
  - Dizziness [Unknown]
  - Burning sensation [Recovering/Resolving]
  - Disturbance in attention [Unknown]
  - Cardiovascular disorder [Not Recovered/Not Resolved]
  - Abdominal pain upper [Unknown]
  - Adverse reaction [Unknown]
  - Muscle tightness [Unknown]
  - Pyrexia [Not Recovered/Not Resolved]
  - Neuralgia [Unknown]
  - Pain [Unknown]
  - Restlessness [Not Recovered/Not Resolved]
  - Hyperhidrosis [Unknown]
  - Somatic dysfunction [Not Recovered/Not Resolved]
  - Paraesthesia [Unknown]
  - Performance status decreased [Not Recovered/Not Resolved]
  - Abdominal tenderness [Not Recovered/Not Resolved]
  - Chest pain [Not Recovered/Not Resolved]
  - Malaise [Unknown]
  - Decreased appetite [Unknown]
  - Body temperature increased [Unknown]
  - Paraesthesia [Recovering/Resolving]

NARRATIVE: CASE EVENT DATE: 20181218
